FAERS Safety Report 8309452-8 (Version None)
Quarter: 2012Q2

REPORT INFORMATION
  Report Type: 
  Country: None (occurrence: None)
  Receive Date: 20120424
  Receipt Date: 20120424
  Transmission Date: 20120825
  Serious: Yes (Hospitalization)
  Sender: FDA-Public Use
  Company Number: None

PATIENT
  Sex: Male
  Weight: 12.1 kg

DRUGS (2)
  1. THIOTEPA [Suspect]
     Dosage: 510 MG
  2. CYCLOPHOSPHAMIDE [Suspect]
     Dosage: 3360 MG

REACTIONS (8)
  - ASCITES [None]
  - CAECITIS [None]
  - ACIDOSIS [None]
  - NEUTROPENIC COLITIS [None]
  - ACUTE RESPIRATORY FAILURE [None]
  - ACUTE LUNG INJURY [None]
  - MUCOSAL INFLAMMATION [None]
  - BAROTRAUMA [None]
